FAERS Safety Report 5329632-3 (Version None)
Quarter: 2007Q1

REPORT INFORMATION
  Report Type: 
  Country: None (occurrence: None)
  Receive Date: 20070227
  Receipt Date: 20060125
  Transmission Date: 20070707
  Serious: Yes (Other)
  Sender: FDA-Public Use
  Company Number: 433880

PATIENT
  Age: 18 Year
  Sex: Female
  Weight: 61.7 kg

DRUGS (3)
  1. ACCUTANE [Suspect]
     Indication: ACNE CYSTIC
     Dosage: 60 MG DAILY ORAL
     Route: 048
     Dates: start: 19960218, end: 19960716
  2. IBUPROFEN [Concomitant]
  3. SUPPOSITORY NOS [Concomitant]

REACTIONS (10)
  - ACNE [None]
  - BRONCHITIS [None]
  - DEPRESSION [None]
  - DRY SKIN [None]
  - HERPES SIMPLEX [None]
  - ILL-DEFINED DISORDER [None]
  - INFLAMMATORY BOWEL DISEASE [None]
  - LIP DRY [None]
  - ORAL HERPES [None]
  - UPPER RESPIRATORY TRACT INFECTION [None]
